FAERS Safety Report 4618785-8 (Version None)
Quarter: 2005Q1

REPORT INFORMATION
  Report Type: 
  Country: None (occurrence: None)
  Receive Date: 20050323
  Receipt Date: 20050310
  Transmission Date: 20050727
  Serious: Yes (Other)
  Sender: FDA-Public Use
  Company Number: 200511020BCC

PATIENT
  Age: 46 Year
  Sex: Female
  Weight: 61.2356 kg

DRUGS (2)
  1. RID MOUSSE [Suspect]
     Indication: LICE INFESTATION
     Dosage: ONCE, TOPICAL
     Route: 061
     Dates: start: 20050309
  2. RID MOUSSE [Suspect]
     Indication: PROPHYLAXIS
     Dosage: ONCE, TOPICAL
     Route: 061
     Dates: start: 20050309

REACTIONS (5)
  - FEELING ABNORMAL [None]
  - MEDICATION ERROR [None]
  - NAUSEA [None]
  - OFF LABEL USE [None]
  - SYNCOPE [None]
